FAERS Safety Report 6533295-9 (Version None)
Quarter: 2010Q1

REPORT INFORMATION
  Report Type: 
  Country: None (occurrence: None)
  Receive Date: 20100111
  Receipt Date: 20100105
  Transmission Date: 20100710
  Serious: Yes (Other)
  Sender: FDA-Public Use
  Company Number: MT-MERCK-1001USA00146

PATIENT
  Age: 72 Year
  Sex: Female
  Weight: 60 kg

DRUGS (5)
  1. ZOCOR [Suspect]
     Route: 048
     Dates: start: 20081201
  2. DIOVAN [Concomitant]
     Route: 065
     Dates: start: 20080101
  3. FLUVASTATIN SODIUM [Suspect]
     Route: 065
     Dates: start: 20050101
  4. ASPIRIN [Concomitant]
     Route: 065
     Dates: start: 20050101
  5. BENDROFLUMETHIAZIDE [Concomitant]
     Route: 065
     Dates: start: 20050101

REACTIONS (1)
  - ANDROGENETIC ALOPECIA [None]
